FAERS Safety Report 9702313 (Version 1)
Quarter: 2013Q4

REPORT INFORMATION
  Report Type: Spontaneous
  Country: US (occurrence: None)
  Receive Date: 20131119
  Receipt Date: 20131119
  Transmission Date: 20140711
  Serious: Yes (Other)
  Sender: FDA-Public Use
  Company Number: 2013P1020884

PATIENT
  Age: 7 Day
  Sex: 0
  Weight: 2.9 kg

DRUGS (2)
  1. MILRINONE [Suspect]
     Indication: POOR PERIPHERAL CIRCULATION
     Dosage: UNKNOWN
  2. FUROSEMIDE [Concomitant]

REACTIONS (1)
  - Hypertension [None]
